FAERS Safety Report 18744453 (Version 2)
Quarter: 2021Q1

REPORT INFORMATION
  Report Type: Report from Study
  Country: None (occurrence: US)
  Receive Date: 20210115
  Receipt Date: 20210217
  Transmission Date: 20210419
  Serious: Yes (Hospitalization, Other)
  Sender: FDA-Public Use
  Company Number: US-ABBVIE-21K-163-3727813-00

PATIENT
  Sex: Male

DRUGS (5)
  1. VENCLEXTA [Suspect]
     Active Substance: VENETOCLAX
     Route: 048
     Dates: start: 202011, end: 20210106
  2. VENCLEXTA [Suspect]
     Active Substance: VENETOCLAX
     Indication: ACUTE MYELOID LEUKAEMIA
     Route: 048
     Dates: start: 20200824, end: 20200824
  3. VENCLEXTA [Suspect]
     Active Substance: VENETOCLAX
     Route: 048
     Dates: start: 20200825, end: 20200825
  4. VIDAZA [Concomitant]
     Active Substance: AZACITIDINE
     Indication: ACUTE MYELOID LEUKAEMIA
  5. VENCLEXTA [Suspect]
     Active Substance: VENETOCLAX
     Route: 048
     Dates: start: 20200826, end: 20200826

REACTIONS (12)
  - Blood count abnormal [Recovering/Resolving]
  - White blood cell count abnormal [Recovering/Resolving]
  - Pyrexia [Recovered/Resolved]
  - Metastatic neoplasm [Not Recovered/Not Resolved]
  - FLT3 gene mutation [Unknown]
  - Pituitary tumour [Not Recovered/Not Resolved]
  - Lethargy [Recovered/Resolved]
  - Pneumonia [Not Recovered/Not Resolved]
  - Bone cancer metastatic [Unknown]
  - Staphylococcal infection [Recovered/Resolved]
  - Haemoglobin decreased [Recovering/Resolving]
  - Brain neoplasm [Not Recovered/Not Resolved]

NARRATIVE: CASE EVENT DATE: 2020
